FAERS Safety Report 9203574 (Version 3)
Quarter: 2013Q2

REPORT INFORMATION
  Report Type: Spontaneous
  Country: JP (occurrence: JP)
  Receive Date: 20130402
  Receipt Date: 20130425
  Transmission Date: 20140414
  Serious: Yes (Hospitalization)
  Sender: FDA-Public Use
  Company Number: PHHY2013JP030342

PATIENT
  Age: 52 Year
  Sex: Male

DRUGS (3)
  1. NEORAL [Suspect]
     Indication: PSORIASIS
     Dosage: 250 MG, DAILY
     Route: 048
     Dates: start: 200808
  2. NEORAL [Suspect]
     Dosage: UNK UKN, UNK
     Route: 048
     Dates: start: 201004
  3. CORTICOSTEROIDS [Concomitant]
     Indication: PSORIASIS

REACTIONS (8)
  - Pemphigoid [Recovered/Resolved]
  - Psoriasis [Recovered/Resolved]
  - Rash [Recovered/Resolved]
  - Blister [Recovered/Resolved]
  - Erythema [Recovered/Resolved]
  - Skin exfoliation [Recovered/Resolved]
  - Skin erosion [Recovered/Resolved]
  - Parakeratosis [Recovered/Resolved]
